FAERS Safety Report 23065045 (Version 1)
Quarter: 2023Q4

REPORT INFORMATION
  Report Type: Spontaneous
  Country: US (occurrence: US)
  Receive Date: 20231013
  Receipt Date: 20231013
  Transmission Date: 20240109
  Serious: No
  Sender: FDA-Public Use
  Company Number: US-PFIZER INC-202300319229

PATIENT
  Sex: Male
  Weight: 74.84 kg

DRUGS (2)
  1. ZYVOX [Suspect]
     Active Substance: LINEZOLID
     Indication: Urinary tract infection
     Dosage: 1200 MG, DAILY
     Dates: start: 202309
  2. ARMOUR THYROID [Concomitant]
     Active Substance: THYROID, PORCINE
     Indication: Hypothyroidism
     Dosage: UNK, 1X/DAY (EVERY MORNING AND IT VARIES BY DAY BECAUSE ONE DAY IT IS 120 THE NEXT DAY IT IS 135)
     Route: 048

REACTIONS (6)
  - Burning sensation [Unknown]
  - Vision blurred [Unknown]
  - Visual acuity reduced [Unknown]
  - Musculoskeletal stiffness [Unknown]
  - Headache [Unknown]
  - Poor quality sleep [Unknown]

NARRATIVE: CASE EVENT DATE: 20230101
